FAERS Safety Report 22146750 (Version 3)
Quarter: 2023Q2

REPORT INFORMATION
  Report Type: Spontaneous
  Country: ES (occurrence: ES)
  Receive Date: 20230328
  Receipt Date: 20230405
  Transmission Date: 20230721
  Serious: Yes (Other)
  Sender: FDA-Public Use
  Company Number: ES-AstraZeneca-2023A063656

PATIENT
  Age: 65 Year
  Sex: Female

DRUGS (6)
  1. BEVACIZUMAB [Suspect]
     Active Substance: BEVACIZUMAB
     Indication: Ovarian cancer
     Dosage: 1ST CYCLE
     Dates: start: 201906
  2. BEVACIZUMAB [Suspect]
     Active Substance: BEVACIZUMAB
     Dosage: 22ND CYCLE
     Dates: start: 202104
  3. OLAPARIB [Suspect]
     Active Substance: OLAPARIB
     Indication: Ovarian cancer
     Dosage: 1ST CYCLE
     Dates: start: 201906
  4. OLAPARIB [Suspect]
     Active Substance: OLAPARIB
     Dosage: 22ND CYCLE
     Dates: start: 202104
  5. DURVALUMAB [Suspect]
     Active Substance: DURVALUMAB
     Indication: Ovarian cancer
     Dosage: 1ST CYLCE
     Dates: start: 201906
  6. DURVALUMAB [Suspect]
     Active Substance: DURVALUMAB
     Dosage: 22ND CYCLE
     Dates: start: 202104

REACTIONS (2)
  - Diabetes mellitus [Unknown]
  - Ketoacidosis [Unknown]

NARRATIVE: CASE EVENT DATE: 20210401
